FAERS Safety Report 9088093 (Version 1)
Quarter: 2013Q1

REPORT INFORMATION
  Report Type: Report from Study
  Country: US (occurrence: US)
  Receive Date: 20130130
  Receipt Date: 20130130
  Transmission Date: 20140127
  Serious: No
  Sender: FDA-Public Use
  Company Number: US-ABBOTT-12P-163-0969948-00

PATIENT
  Sex: Female

DRUGS (5)
  1. HUMIRA 40 MG/0.8 ML PEN [Suspect]
     Indication: RHEUMATOID ARTHRITIS
     Dates: start: 2011, end: 201201
  2. HUMIRA 40 MG/0.8 ML PEN [Suspect]
     Dates: start: 201206
  3. BACTRIM [Suspect]
     Indication: PRODUCT USED FOR UNKNOWN INDICATION
  4. ZITHROMAX [Suspect]
     Indication: PRODUCT USED FOR UNKNOWN INDICATION
  5. ARAVA [Concomitant]
     Indication: PRODUCT USED FOR UNKNOWN INDICATION

REACTIONS (8)
  - Rhinorrhoea [Recovering/Resolving]
  - Diarrhoea [Recovered/Resolved]
  - Abdominal pain upper [Recovered/Resolved]
  - Faecal incontinence [Recovered/Resolved]
  - Cough [Recovering/Resolving]
  - Mycotic allergy [Unknown]
  - Allergy to plants [Unknown]
  - Allergy to animal [Unknown]
